FAERS Safety Report 4641422-3 (Version None)
Quarter: 2005Q2

REPORT INFORMATION
  Report Type: 
  Country: None (occurrence: None)
  Receive Date: 20050420
  Receipt Date: 20050420
  Transmission Date: 20051028
  Serious: Yes (Hospitalization)
  Sender: FDA-Public Use
  Company Number: None

PATIENT
  Age: 54 Year
  Sex: Male
  Weight: 106.5953 kg

DRUGS (9)
  1. CYMBALTA [Suspect]
     Indication: FIBROMYALGIA
     Dosage: 20 MG TWICE A DAY ORAL
     Route: 048
     Dates: start: 20050414, end: 20050414
  2. VICODIN [Concomitant]
  3. PERCOCET [Concomitant]
  4. OXYCONTIN [Concomitant]
  5. LORAZEPAM [Concomitant]
  6. CYCLOBENZAPRINE HCL [Concomitant]
  7. LIPITOR [Concomitant]
  8. ACTONEL [Concomitant]
  9. XANAX [Concomitant]

REACTIONS (11)
  - ANXIETY [None]
  - BLOOD PRESSURE INCREASED [None]
  - BRUXISM [None]
  - FEELING ABNORMAL [None]
  - FEELING JITTERY [None]
  - HEADACHE [None]
  - HEART RATE INCREASED [None]
  - INSOMNIA [None]
  - PALPITATIONS [None]
  - PSYCHOMOTOR HYPERACTIVITY [None]
  - THINKING ABNORMAL [None]
